FAERS Safety Report 25929889 (Version 1)
Quarter: 2025Q4

REPORT INFORMATION
  Report Type: Spontaneous
  Country: US (occurrence: None)
  Receive Date: 20251015
  Receipt Date: 20251015
  Transmission Date: 20260118
  Serious: Yes (Disabling)
  Sender: FDA-CTU
  Company Number: None

PATIENT
  Age: 84 Year
  Sex: Male
  Weight: 85.5 kg

DRUGS (7)
  1. RECLAST [Suspect]
     Active Substance: ZOLEDRONIC ACID
     Indication: Osteopenia
     Route: 042
     Dates: start: 20250228, end: 20250228
  2. VITAMIN B12 [Suspect]
     Active Substance: CYANOCOBALAMIN
  3. ROSUVASTATIN [Suspect]
     Active Substance: ROSUVASTATIN
  4. TRAMADOL [Suspect]
     Active Substance: TRAMADOL
  5. UNSPECIFIED INGREDIENT [Concomitant]
     Active Substance: UNSPECIFIED INGREDIENT
  6. ASPIRIN [Concomitant]
     Active Substance: ASPIRIN
  7. VITAMIN D [Concomitant]
     Active Substance: VITAMIN D NOS

REACTIONS (21)
  - Influenza like illness [None]
  - Diarrhoea [None]
  - Balance disorder [None]
  - Decreased appetite [None]
  - Fatigue [None]
  - Tremor [None]
  - Arthralgia [None]
  - Nocturia [None]
  - Arthralgia [None]
  - Iron deficiency [None]
  - Poor quality sleep [None]
  - Myalgia [None]
  - Drug ineffective [None]
  - Frustration tolerance decreased [None]
  - Musculoskeletal stiffness [None]
  - Thrombocytosis [None]
  - Musculoskeletal discomfort [None]
  - Musculoskeletal discomfort [None]
  - Weight [None]
  - Polymyalgia rheumatica [None]
  - Decreased activity [None]

NARRATIVE: CASE EVENT DATE: 20250228
